FAERS Safety Report 5013890-9 (Version None)
Quarter: 2006Q2

REPORT INFORMATION
  Report Type: 
  Country: None (occurrence: None)
  Receive Date: 20060525
  Receipt Date: 20060512
  Transmission Date: 20061013
  Serious: Yes (Hospitalization)
  Sender: FDA-Public Use
  Company Number: SEWYE620815MAY06

PATIENT
  Age: 34 Year
  Sex: Female

DRUGS (2)
  1. EFFEXOR [Suspect]
     Indication: AGORAPHOBIA
     Dosage: ORAL
     Route: 048
     Dates: start: 20060101, end: 20060201
  2. ANAFRANIL [Suspect]
     Indication: AGORAPHOBIA
     Dosage: ORAL
     Route: 048
     Dates: end: 20060101

REACTIONS (15)
  - ALANINE AMINOTRANSFERASE INCREASED [None]
  - ASPARTATE AMINOTRANSFERASE INCREASED [None]
  - BLOOD ALKALINE PHOSPHATASE INCREASED [None]
  - BLOOD BILIRUBIN INCREASED [None]
  - BLOOD CREATININE INCREASED [None]
  - BLOOD PRESSURE INCREASED [None]
  - CARDIAC FAILURE [None]
  - EJECTION FRACTION DECREASED [None]
  - HAEMOGLOBIN ABNORMAL [None]
  - MENSTRUATION IRREGULAR [None]
  - OEDEMA PERIPHERAL [None]
  - PLEURAL EFFUSION [None]
  - VENTRICULAR HYPERTROPHY [None]
  - VOMITING [None]
  - WEIGHT DECREASED [None]
